FAERS Safety Report 4707756-9 (Version None)
Quarter: 2005Q2

REPORT INFORMATION
  Report Type: 
  Country: None (occurrence: None)
  Receive Date: 20050629
  Receipt Date: 20050301
  Transmission Date: 20051028
  Serious: No
  Sender: FDA-Public Use
  Company Number: 05P-163-0292422-00

PATIENT
  Age: 44 Year
  Sex: Female
  Weight: 72.5755 kg

DRUGS (16)
  1. HUMIRA [Suspect]
     Indication: RHEUMATOID ARTHRITIS
     Dosage: 40 MG, 1 IN 2 WK, SUBCUTANEOUS
     Route: 058
     Dates: start: 20040101
  2. FAMOTIDINE [Concomitant]
  3. CLONAZEPAM [Concomitant]
  4. LEXAPRO [Concomitant]
  5. HYDROCHLOROTHIAZIDE [Concomitant]
  6. ZETIA [Concomitant]
  7. POTASSIUM CHLORIDE [Concomitant]
  8. BUMETANIDE [Concomitant]
  9. METHOTREXATE [Concomitant]
  10. FOLINIC ACID [Concomitant]
  11. TIZANIDINE HCL [Concomitant]
  12. ULTRACET [Concomitant]
  13. VALPROATE SODIUM [Concomitant]
  14. TRAZODONE [Concomitant]
  15. AXOTAL [Concomitant]
  16. PROMETHAZINE [Concomitant]

REACTIONS (1)
  - INJECTION SITE HAEMORRHAGE [None]
